FAERS Safety Report 18484491 (Version 1)
Quarter: 2020Q4

REPORT INFORMATION
  Report Type: Spontaneous
  Country: US (occurrence: US)
  Receive Date: 20201110
  Receipt Date: 20201110
  Transmission Date: 20210114
  Serious: No
  Sender: FDA-Public Use
  Company Number: US-SA-2020SA313623

PATIENT

DRUGS (1)
  1. AUBAGIO [Suspect]
     Active Substance: TERIFLUNOMIDE
     Indication: MULTIPLE SCLEROSIS
     Dosage: 14 MG, QD
     Route: 048
     Dates: start: 20191108

REACTIONS (5)
  - Musculoskeletal stiffness [Unknown]
  - Product dose omission issue [Unknown]
  - Hypoaesthesia [Unknown]
  - Paraesthesia [Unknown]
  - Muscle spasticity [Unknown]
